FAERS Safety Report 23129486 (Version 2)
Quarter: 2024Q4

REPORT INFORMATION
  Report Type: Report from Study
  Country: US (occurrence: US)
  Receive Date: 20231031
  Receipt Date: 20241205
  Transmission Date: 20250115
  Serious: Yes (Hospitalization)
  Sender: ABBVIE
  Company Number: US-ABBVIE-5470095

PATIENT
  Age: 56 Year
  Sex: Female

DRUGS (1)
  1. SKYRIZI [Suspect]
     Active Substance: RISANKIZUMAB-RZAA
     Indication: Psoriasis
     Route: 058
     Dates: start: 20230531

REACTIONS (1)
  - Diabetes mellitus [Unknown]

NARRATIVE: CASE EVENT DATE: 20230901
